FAERS Safety Report 7589608-2 (Version None)
Quarter: 2011Q2

REPORT INFORMATION
  Report Type: 
  Country: None (occurrence: None)
  Receive Date: 20110603
  Receipt Date: 20110322
  Transmission Date: 20111010
  Serious: No
  Sender: FDA-Public Use
  Company Number: 2011SP013650

PATIENT
  Sex: Female

DRUGS (1)
  1. SAPHRIS [Suspect]
     Indication: PRODUCT USED FOR UNKNOWN INDICATION
     Dosage: 20 MG;SL
     Route: 060
     Dates: start: 20100101, end: 20110301

REACTIONS (2)
  - BLOOD GLUCOSE INCREASED [None]
  - GRIMACING [None]
